FAERS Safety Report 9532299 (Version 2)
Quarter: 2013Q4

REPORT INFORMATION
  Report Type: Spontaneous
  Country: US (occurrence: US)
  Receive Date: 20130918
  Receipt Date: 20131002
  Transmission Date: 20140711
  Serious: Yes (Hospitalization, Other)
  Sender: FDA-Public Use
  Company Number: PHEH2013US019419

PATIENT
  Sex: Male

DRUGS (24)
  1. EXELON PATCH [Suspect]
     Indication: DEMENTIA
     Dosage: 4.6 MG (PATCH 5 CM2), FOR 6 WEEKS
     Route: 062
  2. EXELON PATCH [Suspect]
     Dosage: 9.5 MG (PATCH 10 CM2), DAILY
     Route: 062
  3. NOVOLOG [Concomitant]
     Indication: DIABETES MELLITUS
     Dosage: 4 DF, QID
  4. ISOSORBIDE [Concomitant]
     Indication: ANGINA PECTORIS
     Dosage: UNK UKN, UNK
  5. METOPROLOL [Concomitant]
     Indication: HYPERTENSION
     Dosage: UNK UKN, UNK
  6. RANEXA [Concomitant]
     Indication: CHEST PAIN
     Dosage: UNK UKN, UNK
  7. LISINOPRIL [Concomitant]
     Indication: RENAL DISORDER
     Dosage: UNK UKN, UNK
  8. ALLOPURINOL [Concomitant]
     Indication: GOUT
     Dosage: UNK UKN, UNK
  9. LEVOTHYROXINE [Concomitant]
     Indication: THYROID DISORDER
     Dosage: UNK UKN, UNK
  10. FUROSEMIDE [Concomitant]
     Dosage: UNK UKN, UNK
  11. SIMVASTATIN [Concomitant]
     Indication: BLOOD CHOLESTEROL
     Dosage: UNK UKN, UNK
  12. ASCORBIC ACID W/VITAMIN D NOS [Concomitant]
     Dosage: UNK UKN, UNK
  13. CHONDROITIN [Concomitant]
     Dosage: UNK UKN, UNK
  14. ASA [Concomitant]
     Dosage: 81 MG, UNK
  15. VITAMIN B12 [Concomitant]
     Dosage: 1 DF, QMO
  16. NAMENDA [Concomitant]
     Indication: DEMENTIA
     Dosage: UNK UKN, UNK
  17. OMEPRAZOLE [Concomitant]
     Indication: ABDOMINAL DISCOMFORT
     Dosage: UNK UKN, UNK
  18. INSULIN [Concomitant]
     Indication: DIABETES MELLITUS
     Dosage: 4 DF, DAILY
  19. METOPROLOL TARTRATE [Concomitant]
     Dosage: UNK UKN, UNK
  20. LANTUS [Concomitant]
     Dosage: UNK UKN, UNK
  21. COQ 10 [Concomitant]
     Dosage: UNK UKN, UNK
  22. SUPER B COMPL [Concomitant]
     Dosage: UNK UKN, UNK
  23. VIT C [Concomitant]
     Dosage: UNK UKN, UNK
  24. GLUCOSAMINE [Concomitant]
     Dosage: UNK UKN, UNK

REACTIONS (6)
  - Pneumonia [Unknown]
  - Hypoglycaemia [Unknown]
  - Hyperhidrosis [Unknown]
  - Feeling abnormal [Unknown]
  - Tremor [Unknown]
  - Thrombosis [Unknown]
